FAERS Safety Report 5142506-6 (Version None)
Quarter: 2006Q4

REPORT INFORMATION
  Report Type: 
  Country: None (occurrence: None)
  Receive Date: 20061102
  Receipt Date: 20061025
  Transmission Date: 20070319
  Serious: Yes (Hospitalization)
  Sender: FDA-Public Use
  Company Number: US-SANOFI-SYNTHELABO-F03200600232

PATIENT
  Sex: Male

DRUGS (14)
  1. TRIAMTERENE [Concomitant]
     Dosage: UNK
     Route: 048
     Dates: end: 20060906
  2. ONDANSETRON [Concomitant]
     Dosage: UNK
     Route: 065
     Dates: start: 20060907
  3. METOCLOPRAMIDE [Concomitant]
     Dosage: UNK
     Route: 048
     Dates: start: 20060907
  4. DARBEPOETIN ALFA [Concomitant]
     Dosage: UNK
     Route: 065
  5. METOPROLOL TARTRATE [Concomitant]
     Dosage: UNK
     Route: 048
     Dates: start: 20031222, end: 20060928
  6. LOTREL [Concomitant]
     Dosage: UNK
     Route: 048
     Dates: start: 20031222, end: 20060928
  7. OCTREOTIDE ACETATE [Concomitant]
     Dosage: UNK
     Route: 058
     Dates: start: 20030101
  8. IBUPROFEN [Concomitant]
     Dosage: UNK
     Route: 048
  9. SPIRONOLACTONE [Concomitant]
     Dosage: UNK
     Route: 048
     Dates: start: 20060912, end: 20061005
  10. POTASSIUM ACETATE [Concomitant]
     Dosage: UNK
     Route: 048
     Dates: end: 20060914
  11. BMS582664 [Suspect]
     Indication: NEOPLASM MALIGNANT
     Route: 048
     Dates: start: 20060907
  12. LEUCOVORIN [Suspect]
     Dosage: UNK
     Route: 065
     Dates: start: 20060914
  13. FLUOROURACIL [Suspect]
     Dosage: UNK
     Route: 042
     Dates: start: 20060914
  14. OXALIPLATIN [Suspect]
     Dosage: UNK
     Route: 042
     Dates: start: 20060914, end: 20060914

REACTIONS (7)
  - AORTIC THROMBOSIS [None]
  - CARDIOMYOPATHY [None]
  - DYSPNOEA [None]
  - EJECTION FRACTION DECREASED [None]
  - MITRAL VALVE INCOMPETENCE [None]
  - PALPITATIONS [None]
  - VENTRICULAR DYSFUNCTION [None]
